FAERS Safety Report 19383680 (Version 1)
Quarter: 2021Q2

REPORT INFORMATION
  Report Type: Spontaneous
  Country: US (occurrence: US)
  Receive Date: 20210608
  Receipt Date: 20210608
  Transmission Date: 20210717
  Serious: Yes (Hospitalization, Other)
  Sender: FDA-Public Use
  Company Number: US-HIKMA PHARMACEUTICALS USA INC.-US-H14001-21-54552

PATIENT
  Age: 4 Decade
  Sex: Female

DRUGS (20)
  1. BUPRENORPHINE. [Concomitant]
     Active Substance: BUPRENORPHINE
     Indication: CHEST PAIN
     Dosage: (DAY 10) 8 MG TID
     Route: 065
  2. BUPRENORPHINE. [Concomitant]
     Active Substance: BUPRENORPHINE
     Dosage: (DAY 15) 8 MG TID
     Route: 065
  3. BUPRENORPHINE. [Concomitant]
     Active Substance: BUPRENORPHINE
     Dosage: 1 MG AM AND 2MG PM (DAY 2)
     Route: 065
  4. MORPHINE [Suspect]
     Active Substance: MORPHINE
     Dosage: AS NEEDED
     Route: 042
  5. VANCOMYCIN [Concomitant]
     Active Substance: VANCOMYCIN
     Indication: OSTEOMYELITIS
     Dosage: UNKNOWN
     Route: 065
  6. BUPRENORPHINE. [Concomitant]
     Active Substance: BUPRENORPHINE
     Dosage: (DAY 12) 8 MG TID
     Route: 065
  7. BUPRENORPHINE. [Concomitant]
     Active Substance: BUPRENORPHINE
     Dosage: (DAY 4) 4 MG BID
     Route: 065
  8. BUPRENORPHINE. [Concomitant]
     Active Substance: BUPRENORPHINE
     Dosage: (DAY 13) 8 MG TID
     Route: 065
  9. BUPRENORPHINE. [Concomitant]
     Active Substance: BUPRENORPHINE
     Dosage: (DAY 8) 4 MG BID
     Route: 065
  10. BUPRENORPHINE. [Concomitant]
     Active Substance: BUPRENORPHINE
     Dosage: (DAY 14) 8 MG TID
     Route: 065
  11. BUPRENORPHINE. [Concomitant]
     Active Substance: BUPRENORPHINE
     Dosage: DAY 1
     Route: 065
  12. BUPRENORPHINE. [Concomitant]
     Active Substance: BUPRENORPHINE
     Dosage: (DAY 7) 4 MG BID
     Route: 065
  13. CEFAZOLIN [Concomitant]
     Active Substance: CEFAZOLIN
     Indication: OSTEOMYELITIS
     Dosage: UNKNOWN
     Route: 065
  14. MORPHINE [Suspect]
     Active Substance: MORPHINE
     Indication: CHEST PAIN
     Route: 042
  15. BUPRENORPHINE. [Concomitant]
     Active Substance: BUPRENORPHINE
     Dosage: (DAY 11) 8 MG TID
     Route: 065
  16. BUPRENORPHINE. [Concomitant]
     Active Substance: BUPRENORPHINE
     Dosage: (DAY 3) 4 MG BID
     Route: 065
  17. BUPRENORPHINE. [Concomitant]
     Active Substance: BUPRENORPHINE
     Dosage: (DAY 5) 4 MG BID
     Route: 065
  18. BUPRENORPHINE. [Concomitant]
     Active Substance: BUPRENORPHINE
     Dosage: (DAY 16) 8 MG TID
     Route: 065
  19. BUPRENORPHINE. [Concomitant]
     Active Substance: BUPRENORPHINE
     Dosage: (DAY 6) 4 MG BID
     Route: 065
  20. BUPRENORPHINE. [Concomitant]
     Active Substance: BUPRENORPHINE
     Dosage: (DAY 9) 8 MG TID
     Route: 065

REACTIONS (13)
  - Drug withdrawal syndrome [Not Recovered/Not Resolved]
  - Chest pain [Unknown]
  - Rhinorrhoea [Recovered/Resolved]
  - Diarrhoea [Unknown]
  - Piloerection [Recovered/Resolved]
  - Agitation [Recovered/Resolved]
  - Restless legs syndrome [Recovered/Resolved]
  - Sneezing [Recovered/Resolved]
  - Gastrointestinal pain [Unknown]
  - Anxiety [Not Recovered/Not Resolved]
  - Hot flush [Not Recovered/Not Resolved]
  - Lacrimation increased [Recovered/Resolved]
  - Mydriasis [Recovered/Resolved]
